FAERS Safety Report 13329925 (Version 1)
Quarter: 2017Q1

REPORT INFORMATION
  Report Type: Spontaneous
  Country: US (occurrence: US)
  Receive Date: 20170313
  Receipt Date: 20170313
  Transmission Date: 20170428
  Serious: Yes (Other)
  Sender: FDA-Public Use
  Company Number: US-TEVA-748060USA

PATIENT
  Age: 88 Year
  Sex: Male

DRUGS (9)
  1. OXYCODONE W/IBUPROFEN [Suspect]
     Active Substance: IBUPROFEN\OXYCODONE HYDROCHLORIDE
     Indication: PAIN
     Dosage: PRN AROUND 15 MG/DAY
     Route: 065
  2. WARFARIN [Concomitant]
     Active Substance: WARFARIN
     Route: 065
  3. ASPIRIN. [Concomitant]
     Active Substance: ASPIRIN
     Route: 065
  4. HYDROCORTISONE. [Concomitant]
     Active Substance: HYDROCORTISONE
     Route: 065
  5. TAMSULOSIN [Concomitant]
     Active Substance: TAMSULOSIN
     Route: 065
  6. LEVOTHYROXINE SODIUM. [Concomitant]
     Active Substance: LEVOTHYROXINE SODIUM
     Route: 065
  7. TESTOSTERONE. [Concomitant]
     Active Substance: TESTOSTERONE
     Route: 065
  8. RANITIDINE. [Concomitant]
     Active Substance: RANITIDINE
     Route: 065
  9. SERTRALINE [Concomitant]
     Active Substance: SERTRALINE HYDROCHLORIDE
     Route: 065

REACTIONS (2)
  - Drug withdrawal syndrome [Recovered/Resolved]
  - Restless legs syndrome [Recovered/Resolved]
